FAERS Safety Report 17988899 (Version 1)
Quarter: 2020Q3

REPORT INFORMATION
  Report Type: Spontaneous
  Country: US (occurrence: US)
  Receive Date: 20200707
  Receipt Date: 20200707
  Transmission Date: 20201103
  Serious: Yes (Other)
  Sender: FDA-Public Use
  Company Number: US-SUNOVION-2020SUN001942

PATIENT
  Age: 53 Year
  Sex: Female

DRUGS (2)
  1. KEPPRA [Concomitant]
     Active Substance: LEVETIRACETAM
  2. APTIOM [Suspect]
     Active Substance: ESLICARBAZEPINE ACETATE
     Dosage: 200 MG, BID
     Route: 048

REACTIONS (5)
  - Incorrect dose administered [Unknown]
  - Fall [Unknown]
  - Seizure [Unknown]
  - Off label use [Unknown]
  - Illness [Unknown]
